FAERS Safety Report 17920844 (Version 4)
Quarter: 2020Q3

REPORT INFORMATION
  Report Type: Spontaneous
  Country: ES (occurrence: ES)
  Receive Date: 20200622
  Receipt Date: 20200901
  Transmission Date: 20201103
  Serious: Yes (Hospitalization, Other)
  Sender: FDA-Public Use
  Company Number: ES-AUROBINDO-AUR-APL-2020-029166

PATIENT
  Age: 69 Year
  Sex: Female

DRUGS (11)
  1. RIVASTIGMINE  ORAL SOLUTION [Suspect]
     Active Substance: RIVASTIGMINE
     Indication: HALLUCINATION
     Dosage: 4.5 DROPS AND 5 DROPS, ONCE A DAY(3?0?3 )
     Route: 048
     Dates: start: 20200519, end: 20200523
  2. DUODOPA [Suspect]
     Active Substance: CARBIDOPA\LEVODOPA
     Dosage: INCREASE THE CONTINUOUS DOSE
     Route: 065
     Dates: start: 20200526, end: 20200603
  3. DUODOPA [Suspect]
     Active Substance: CARBIDOPA\LEVODOPA
     Dosage: CONTINUOUS DOSE DECREASED TO 2.1 ML/H
     Route: 065
     Dates: start: 20200603, end: 202007
  4. DUODOPA [Suspect]
     Active Substance: CARBIDOPA\LEVODOPA
     Dosage: INCREASED THE CONTINUOUS DOSE TO 2.3 ML/H
     Route: 065
     Dates: start: 202007
  5. TRAMADOL. [Concomitant]
     Active Substance: TRAMADOL
     Indication: PRODUCT USED FOR UNKNOWN INDICATION
     Dosage: UNK
     Route: 065
  6. DUODOPA [Suspect]
     Active Substance: CARBIDOPA\LEVODOPA
     Dosage: INCREASE CONTINUOUS DOSE BY 0.2 ML/H
     Route: 065
     Dates: start: 202007, end: 20200804
  7. DUODOPA [Suspect]
     Active Substance: CARBIDOPA\LEVODOPA
     Indication: PARKINSON^S DISEASE
     Dosage: UNK
     Route: 065
     Dates: start: 20160518, end: 20200526
  8. RIVASTIGMINE. [Concomitant]
     Active Substance: RIVASTIGMINE
     Indication: PRODUCT USED FOR UNKNOWN INDICATION
     Dosage: UNK
     Route: 065
  9. DUODOPA [Suspect]
     Active Substance: CARBIDOPA\LEVODOPA
     Dosage: UNK,LOWER THE CONTINUOUS DOSE TO 2.3 ML / H
     Route: 065
     Dates: start: 20200804
  10. RIVASTIGMINE  ORAL SOLUTION [Suspect]
     Active Substance: RIVASTIGMINE
     Dosage: 3.5 ?0?4 (DROPS), ONCE A DAY
     Route: 048
     Dates: start: 20200523, end: 202006
  11. RIVASTIGMINE  ORAL SOLUTION [Suspect]
     Active Substance: RIVASTIGMINE
     Dosage: 3?0?3
     Route: 065
     Dates: start: 202006

REACTIONS (15)
  - Asthenia [Unknown]
  - Muscular weakness [Recovered/Resolved]
  - Fatigue [Recovered/Resolved]
  - Pain in extremity [Recovered/Resolved]
  - On and off phenomenon [Recovering/Resolving]
  - Discomfort [Recovered/Resolved]
  - Tremor [Recovered/Resolved]
  - General physical health deterioration [Not Recovered/Not Resolved]
  - Gait inability [Recovering/Resolving]
  - Nausea [Recovered/Resolved]
  - Peripheral artery occlusion [Recovering/Resolving]
  - Hallucination, visual [Recovered/Resolved]
  - Vomiting [Recovered/Resolved]
  - Loss of personal independence in daily activities [Unknown]
  - Feeling abnormal [Not Recovered/Not Resolved]

NARRATIVE: CASE EVENT DATE: 2020
